FAERS Safety Report 5838714-9 (Version None)
Quarter: 2008Q3

REPORT INFORMATION
  Report Type: 
  Country: None (occurrence: None)
  Receive Date: 20080808
  Receipt Date: 20080731
  Transmission Date: 20090109
  Serious: Yes (Disabling)
  Sender: FDA-Public Use
  Company Number: B0531465A

PATIENT
  Age: 52 Year
  Sex: Female

DRUGS (6)
  1. ARIXTRA [Suspect]
     Indication: PULMONARY EMBOLISM
     Route: 058
     Dates: start: 20080201, end: 20080601
  2. TAXOTERE [Suspect]
     Indication: BREAST CANCER METASTATIC
     Route: 042
     Dates: start: 20080306, end: 20080530
  3. HERCEPTIN [Suspect]
     Indication: BREAST CANCER METASTATIC
     Route: 042
     Dates: start: 20080306, end: 20080530
  4. EFFEXOR [Concomitant]
     Route: 065
  5. CORTANCYL [Concomitant]
     Route: 065
  6. TOPALGIC (FRANCE) [Concomitant]
     Indication: PAIN
     Route: 065

REACTIONS (6)
  - ANAPHYLACTIC REACTION [None]
  - BRONCHOSPASM [None]
  - COUGH [None]
  - DYSPNOEA EXERTIONAL [None]
  - FEBRILE NEUTROPENIA [None]
  - INTENTIONAL DRUG MISUSE [None]
